FAERS Safety Report 4725733-9 (Version None)
Quarter: 2005Q3

REPORT INFORMATION
  Report Type: 
  Country: None (occurrence: None)
  Receive Date: 20050725
  Receipt Date: 20050714
  Transmission Date: 20060218
  Serious: Yes (Other)
  Sender: FDA-Public Use
  Company Number: 2005103648

PATIENT
  Age: 48 Year
  Sex: Male
  Weight: 149.687 kg

DRUGS (6)
  1. PROCARDIA XL [Suspect]
     Indication: BLOOD PRESSURE
     Dosage: 30 MG, BID, ORAL
     Route: 048
     Dates: start: 19970101
  2. ZOLOFT [Concomitant]
  3. PRENISONE (PREDNISONE) [Concomitant]
  4. CELLCEPT [Concomitant]
  5. ATACAND [Concomitant]
  6. PROGRAF [Concomitant]

REACTIONS (1)
  - DIABETES MELLITUS [None]
